FAERS Safety Report 9255500 (Version 1)
Quarter: 2013Q2

REPORT INFORMATION
  Report Type: Spontaneous
  Country: US (occurrence: None)
  Receive Date: 20130423
  Receipt Date: 20130423
  Transmission Date: 20140414
  Serious: Yes (Hospitalization)
  Sender: FDA-Public Use
  Company Number: None

PATIENT
  Age: 23 Year
  Sex: Male

DRUGS (1)
  1. CIPROFLOXACIN [Suspect]
     Indication: URINARY TRACT INFECTION
     Dosage: 500MG  BID  PO
     Route: 048
     Dates: start: 20121221, end: 20121223

REACTIONS (7)
  - Dyspnoea [None]
  - Cough [None]
  - Rhinorrhoea [None]
  - Eyelid oedema [None]
  - Heart rate increased [None]
  - Oral pruritus [None]
  - Oxygen saturation decreased [None]
